FAERS Safety Report 6767113-0 (Version None)
Quarter: 2010Q2

REPORT INFORMATION
  Report Type: 
  Country: None (occurrence: None)
  Receive Date: 20100611
  Receipt Date: 20100611
  Transmission Date: 20101027
  Serious: Yes (Hospitalization)
  Sender: FDA-Public Use
  Company Number: None

PATIENT
  Age: 60 Year
  Sex: Male
  Weight: 114 kg

DRUGS (1)
  1. FRESENIUS PROPOVEN 10 MG/CC AAP [Suspect]
     Indication: COLONOSCOPY
     Dosage: 160 MG ONCE IV DRIP
     Route: 041
     Dates: start: 20100524, end: 20100524

REACTIONS (6)
  - CARDIAC DISORDER [None]
  - DELAYED RECOVERY FROM ANAESTHESIA [None]
  - DEPRESSED LEVEL OF CONSCIOUSNESS [None]
  - METABOLIC ACIDOSIS [None]
  - MYOGLOBINURIA [None]
  - PROPOFOL INFUSION SYNDROME [None]
